FAERS Safety Report 8049203-8 (Version None)
Quarter: 2012Q1

REPORT INFORMATION
  Report Type: 
  Country: None (occurrence: None)
  Receive Date: 20120117
  Receipt Date: 20120111
  Transmission Date: 20120608
  Serious: Yes (Other)
  Sender: FDA-Public Use
  Company Number: US-JNJFOC-20120104428

PATIENT
  Sex: Male
  Weight: 78.93 kg

DRUGS (7)
  1. INVEGA [Suspect]
     Route: 048
     Dates: start: 20100101, end: 20110101
  2. INVEGA [Suspect]
     Route: 048
     Dates: start: 20100101, end: 20110101
  3. INVEGA [Suspect]
     Indication: BIPOLAR DISORDER
     Route: 048
     Dates: start: 20110101, end: 20120106
  4. INVEGA [Suspect]
     Indication: PSYCHOTIC DISORDER
     Route: 048
     Dates: start: 20110101, end: 20120106
  5. DEPAKOTE [Concomitant]
     Indication: BIPOLAR DISORDER
     Route: 048
  6. UNKNOWN MEDICATION [Concomitant]
     Indication: DIABETES MELLITUS
     Route: 048
  7. LITHIUM CARBONATE [Concomitant]
     Indication: BIPOLAR DISORDER
     Route: 048

REACTIONS (3)
  - ERECTILE DYSFUNCTION [None]
  - DRUG EFFECT DECREASED [None]
  - BLOOD PROLACTIN INCREASED [None]
